FAERS Safety Report 24629099 (Version 1)
Quarter: 2024Q4

REPORT INFORMATION
  Report Type: Spontaneous
  Country: FR (occurrence: FR)
  Receive Date: 20241118
  Receipt Date: 20241118
  Transmission Date: 20250114
  Serious: Yes (Hospitalization)
  Sender: CHEPLAPHARM
  Company Number: None

PATIENT
  Age: 29 Year
  Sex: Female

DRUGS (9)
  1. OLANZAPINE [Suspect]
     Active Substance: OLANZAPINE
     Indication: Neurologic somatic symptom disorder
     Route: 048
     Dates: start: 20241021, end: 20241025
  2. AMITRIPTYLINE HYDROCHLORIDE [Suspect]
     Active Substance: AMITRIPTYLINE HYDROCHLORIDE
     Indication: Neurologic somatic symptom disorder
     Dosage: EVERY 1 DAY; SINCE 24/10, PREVIOUS DAILY DOSE NOT SPECIFIED?DAILY DOSE: 100 MILLIGRAM
     Route: 048
     Dates: start: 20241014, end: 20241025
  3. CHLORPROMAZINE [Concomitant]
     Active Substance: CHLORPROMAZINE
  4. SERTRALINE [Concomitant]
     Active Substance: SERTRALINE HYDROCHLORIDE
  5. KETAMINE [Concomitant]
     Active Substance: KETAMINE
  6. LORAZEPAM [Concomitant]
     Active Substance: LORAZEPAM
  7. NAPROXEN [Concomitant]
     Active Substance: NAPROXEN
  8. LAMALINE [Concomitant]
  9. BUPRENORPHINE HYDROCHLORIDE [Concomitant]
     Active Substance: BUPRENORPHINE HYDROCHLORIDE

REACTIONS (8)
  - Hyperthermia [Recovered/Resolved]
  - Malaise [Recovered/Resolved]
  - Headache [Unknown]
  - Pyrexia [Unknown]
  - Chills [Unknown]
  - Palpitations [Unknown]
  - Pain [Unknown]
  - Off label use [Unknown]

NARRATIVE: CASE EVENT DATE: 20241025
